FAERS Safety Report 7711261 (Version 9)
Quarter: 2013Q2

REPORT INFORMATION
  Report Type: Report from Study
  Country: DE (occurrence: DE)
  Receive Date: 20101215
  Receipt Date: 20130422
  Transmission Date: 20140414
  Serious: Yes (Hospitalization, Other)
  Sender: FDA-Public Use
  Company Number: DE-BIOGENIDEC-2010BI042875

PATIENT
  Age: 42 Year
  Sex: Female
  Weight: 67 kg

DRUGS (3)
  1. TYSABRI [Suspect]
     Indication: RELAPSING-REMITTING MULTIPLE SCLEROSIS
     Route: 042
     Dates: start: 20070318, end: 20100803
  2. PRAVASTATIN [Concomitant]
  3. GABAPENTIN [Concomitant]

REACTIONS (2)
  - Neurological decompensation [Recovered/Resolved]
  - Multiple sclerosis relapse [Recovered/Resolved]
